FAERS Safety Report 25887768 (Version 1)
Quarter: 2025Q4

REPORT INFORMATION
  Report Type: Spontaneous
  Country: US (occurrence: US)
  Receive Date: 20251007
  Receipt Date: 20251007
  Transmission Date: 20260118
  Serious: No
  Sender: MIRUM PHARMACEUTICALS
  Company Number: US-MIRUM PHARMACEUTICALS, INC.-US-MIR-25-00704

PATIENT

DRUGS (1)
  1. LIVMARLI [Suspect]
     Active Substance: MARALIXIBAT CHLORIDE
     Indication: Progressive familial intrahepatic cholestasis
     Dosage: UNK UNKNOWN, UNK
     Route: 065

REACTIONS (2)
  - Bilirubin conjugated increased [Unknown]
  - Blood bilirubin increased [Unknown]

NARRATIVE: CASE EVENT DATE: 20250101
